FAERS Safety Report 10086939 (Version 3)
Quarter: 2014Q4

REPORT INFORMATION
  Report Type: Report from Study
  Country: US (occurrence: US)
  Receive Date: 20140418
  Receipt Date: 20141229
  Transmission Date: 20150528
  Serious: Yes (Life-Threatening, Hospitalization)
  Sender: FDA-Public Use
  Company Number: PHEH2014US007584

PATIENT
  Sex: Male

DRUGS (1)
  1. CLOZARIL [Suspect]
     Active Substance: CLOZAPINE
     Indication: PRODUCT USED FOR UNKNOWN INDICATION
     Dosage: 400 MG, UNK
     Route: 065

REACTIONS (10)
  - Suicidal ideation [Unknown]
  - Feelings of worthlessness [Unknown]
  - Hallucination, auditory [Unknown]
  - Schizoaffective disorder [Unknown]
  - Mood altered [Unknown]
  - Depression [Unknown]
  - Scar [Unknown]
  - Self injurious behaviour [Unknown]
  - Hallucination, visual [Unknown]
  - Psychotic disorder [Unknown]
